FAERS Safety Report 8483282-9 (Version None)
Quarter: 2012Q3

REPORT INFORMATION
  Report Type: 
  Country: None (occurrence: None)
  Receive Date: 20120702
  Receipt Date: 20120619
  Transmission Date: 20120928
  Serious: No
  Sender: FDA-Public Use
  Company Number: US-ASTRAZENECA-2012SE41414

PATIENT
  Sex: Female

DRUGS (2)
  1. CO Q10 [Concomitant]
  2. ATACAND [Suspect]
     Route: 048

REACTIONS (3)
  - OFF LABEL USE [None]
  - MYALGIA [None]
  - BLOOD PRESSURE SYSTOLIC INCREASED [None]
